FAERS Safety Report 5164001-0 (Version None)
Quarter: 2006Q4

REPORT INFORMATION
  Report Type: 
  Country: None (occurrence: None)
  Receive Date: 20061204
  Receipt Date: 20010115
  Transmission Date: 20070319
  Serious: Yes (Disabling)
  Sender: FDA-Public Use
  Company Number: 10678761

PATIENT
  Age: 6 Month
  Sex: Female

DRUGS (8)
  1. ZERIT [Suspect]
     Route: 064
     Dates: end: 19990601
  2. ZERIT [Suspect]
     Dosage: D/C'D AT 6 1/2 MONTHS OF AGE
     Route: 048
  3. VIDEX [Suspect]
     Dosage: D/C'D BY PATIENT IN JUNE 1999 AND RESTARTED IN JULY 1999
     Route: 064
     Dates: end: 19990712
  4. VIRAMUNE [Suspect]
     Dosage: D/D'D AT 6 1/2 MONTHS OF AGE
  5. VIRACEPT [Suspect]
     Route: 064
     Dates: end: 19990601
  6. RETROVIR [Suspect]
     Dosage: 1 DOSE OF IV RETROVIR REC'D TRANSPLACENTALLY AT DELIVERY.
     Route: 064
     Dates: start: 19990701, end: 19990712
  7. RETROVIR [Suspect]
     Route: 048
     Dates: start: 19990712, end: 19990701
  8. EPIVIR [Concomitant]
     Dosage: D/C'D AT 6 1/2 MONTHS OF AGE

REACTIONS (4)
  - FOETAL DISTRESS SYNDROME [None]
  - NYSTAGMUS [None]
  - PREGNANCY [None]
  - SMALL FOR DATES BABY [None]
